FAERS Safety Report 20553342 (Version 1)
Quarter: 2022Q1

REPORT INFORMATION
  Report Type: Spontaneous
  Country: US (occurrence: US)
  Receive Date: 20220304
  Receipt Date: 20220304
  Transmission Date: 20220423
  Serious: Yes (Other)
  Sender: FDA-Public Use
  Company Number: US-SA-2022SA067941

PATIENT
  Age: 61 Year
  Sex: Male

DRUGS (4)
  1. JEVTANA [Suspect]
     Active Substance: CABAZITAXEL
     Indication: Product used for unknown indication
     Dosage: UNK
  2. ENZALUTAMIDE [Suspect]
     Active Substance: ENZALUTAMIDE
     Indication: Prostate cancer
     Dosage: 160 MG, QD
     Route: 048
  3. ELIGARD [Concomitant]
     Active Substance: LEUPROLIDE ACETATE
  4. NORCO [Concomitant]
     Active Substance: ACETAMINOPHEN\HYDROCODONE BITARTRATE

REACTIONS (2)
  - Malignant neoplasm progression [Unknown]
  - Drug interaction [Unknown]
